FAERS Safety Report 17804256 (Version 1)
Quarter: 2020Q2

REPORT INFORMATION
  Report Type: Spontaneous
  Country: US (occurrence: US)
  Receive Date: 20200519
  Receipt Date: 20200519
  Transmission Date: 20200714
  Serious: No
  Sender: FDA-Public Use
  Company Number: US-TEVA-2020-US-1238149

PATIENT
  Sex: Male

DRUGS (1)
  1. WARFARIN TEVA [Suspect]
     Active Substance: WARFARIN SODIUM
     Dosage: 5 MILLIGRAM DAILY;
     Route: 065

REACTIONS (1)
  - Dyspepsia [Unknown]
